FAERS Safety Report 8037642-0 (Version None)
Quarter: 2012Q1

REPORT INFORMATION
  Report Type: 
  Country: None (occurrence: None)
  Receive Date: 20120111
  Receipt Date: 20111229
  Transmission Date: 20120608
  Serious: Yes (Hospitalization)
  Sender: FDA-Public Use
  Company Number: US-ACTELION-A-NJ2010-39851

PATIENT

DRUGS (6)
  1. TRACLEER [Suspect]
     Indication: PULMONARY ARTERIAL HYPERTENSION
     Dosage: 125 MG, BID
     Route: 048
     Dates: start: 20081001
  2. ADCIRCA [Concomitant]
  3. DIGOXIN [Concomitant]
  4. OXYGEN [Concomitant]
  5. TRACLEER [Suspect]
     Dosage: 62.5 MG, BID
     Route: 048
     Dates: start: 20080701, end: 20081001
  6. COUMADIN [Concomitant]

REACTIONS (5)
  - NAUSEA [None]
  - HYPOKALAEMIA [None]
  - GASTROENTERITIS [None]
  - ABDOMINAL PAIN [None]
  - CONSTIPATION [None]
